FAERS Safety Report 17089003 (Version 1)
Quarter: 2019Q4

REPORT INFORMATION
  Report Type: Spontaneous
  Country: US (occurrence: US)
  Receive Date: 20191128
  Receipt Date: 20191128
  Transmission Date: 20200122
  Serious: Yes (Other)
  Sender: FDA-Public Use
  Company Number: US-009507513-1911USA011510

PATIENT
  Age: 86 Year

DRUGS (1)
  1. TICE BCG [Suspect]
     Active Substance: BACILLUS CALMETTE-GUERIN SUBSTRAIN TICE LIVE ANTIGEN
     Indication: BLADDER CANCER
     Dosage: 15 INSTILLATIONS
     Route: 043

REACTIONS (2)
  - Cystitis bacterial [Unknown]
  - Disseminated Bacillus Calmette-Guerin infection [Unknown]
